FAERS Safety Report 5823139-2 (Version None)
Quarter: 2008Q3

REPORT INFORMATION
  Report Type: 
  Country: None (occurrence: None)
  Receive Date: 20080724
  Receipt Date: 20080724
  Transmission Date: 20090109
  Serious: Yes (Other)
  Sender: FDA-Public Use
  Company Number: None

PATIENT
  Sex: Male
  Weight: 71.6 kg

DRUGS (14)
  1. TAXOTERE [Suspect]
     Indication: PROSTATE CANCER METASTATIC
     Dosage: 75MG/M2 Q21DAYS IV
     Route: 042
     Dates: start: 20080205, end: 20080722
  2. VERAPAMIL [Concomitant]
  3. LISINOPRIL [Concomitant]
  4. OMEPRAZOLE [Concomitant]
  5. CALTRATE D [Concomitant]
  6. LUPRON [Concomitant]
  7. DEXAMETHASONE [Concomitant]
  8. PREDNISONE [Concomitant]
  9. ZOMETA [Concomitant]
  10. SUTENT [Concomitant]
  11. CRANBERRY PILLS [Concomitant]
  12. MEGA FLORA [Concomitant]
  13. SALINE SPRAY [Concomitant]
  14. AUGMENTIN '125' [Concomitant]

REACTIONS (3)
  - DRUG TOXICITY [None]
  - NEUTROPENIA [None]
  - PHARYNGITIS [None]
